FAERS Safety Report 23723898 (Version 1)
Quarter: 2024Q2

REPORT INFORMATION
  Report Type: Spontaneous
  Country: US (occurrence: None)
  Receive Date: 20240409
  Receipt Date: 20240409
  Transmission Date: 20240716
  Serious: Yes (Death)
  Sender: FDA-Public Use
  Company Number: None

PATIENT
  Age: 73 Year
  Sex: Female

DRUGS (25)
  1. PAZOPANIB [Suspect]
     Active Substance: PAZOPANIB
     Indication: Soft tissue sarcoma
     Dosage: FREQUENCY : DAILY;?
     Route: 048
     Dates: start: 20240109
  2. DOCUSATE [Concomitant]
     Active Substance: DOCUSATE
  3. FERROUS SULFATE [Concomitant]
     Active Substance: FERROUS SULFATE
  4. GABAPENTIN [Concomitant]
     Active Substance: GABAPENTIN
  5. IBUPROFEN [Concomitant]
     Active Substance: IBUPROFEN
  6. IPRATROPIUM/ALB [Concomitant]
  7. LEVOTHYROXINE [Concomitant]
     Active Substance: LEVOTHYROXINE\LEVOTHYROXINE SODIUM
  8. MAGNESIUM CHLORIDE [Concomitant]
     Active Substance: MAGNESIUM CHLORIDE
  9. MELATONIN [Concomitant]
     Active Substance: MELATONIN
  10. MENTHOL [Concomitant]
     Active Substance: MENTHOL
  11. ONDANSETRON [Concomitant]
     Active Substance: ONDANSETRON
  12. OXYCODONE IMMEDIATE REL [Concomitant]
  13. PANTOPRAZOLE [Concomitant]
     Active Substance: PANTOPRAZOLE
  14. MIRALAX NF POWDER [Concomitant]
  15. PROCHLORPERAZINE [Concomitant]
     Active Substance: PROCHLORPERAZINE
  16. THIAMINE HCL POWDER [Concomitant]
  17. EMERGEN-C [Concomitant]
     Active Substance: VITAMINS
  18. MILK OF MAGNESIA [Concomitant]
     Active Substance: MAGNESIUM HYDROXIDE
  19. NYSTATIN [Concomitant]
     Active Substance: NYSTATIN
  20. VITAMIN D NOS [Concomitant]
     Active Substance: VITAMIN D NOS
  21. COLACE [Concomitant]
     Active Substance: DOCUSATE SODIUM
  22. ALBUTEROL [Concomitant]
     Active Substance: ALBUTEROL
  23. ANTACID M [Concomitant]
  24. BIOFREEZE [Concomitant]
     Active Substance: MENTHOL
  25. CITALOPRAM [Concomitant]
     Active Substance: CITALOPRAM\CITALOPRAM HYDROBROMIDE

REACTIONS (1)
  - Death [None]

NARRATIVE: CASE EVENT DATE: 20240401
